FAERS Safety Report 8785788 (Version 2)
Quarter: 2012Q4

REPORT INFORMATION
  Report Type: Report from Study
  Country: IT (occurrence: IT)
  Receive Date: 20120914
  Receipt Date: 20121025
  Transmission Date: 20130627
  Serious: Yes (Other)
  Sender: FDA-Public Use
  Company Number: IT-TEVA-358306USA

PATIENT
  Age: 71 Year
  Sex: Male
  Weight: 71 kg

DRUGS (5)
  1. TREANDA [Suspect]
     Indication: MANTLE CELL LYMPHOMA
     Dosage: UNKNOWN
     Route: 042
     Dates: start: 20120119
  2. OFATUMUMAB [Suspect]
     Indication: MANTLE CELL LYMPHOMA
     Dates: start: 20120118, end: 20120507
  3. BACTRIM [Concomitant]
  4. ZELITREX [Concomitant]
  5. ITRACONAZOLE [Concomitant]

REACTIONS (2)
  - Eye disorder [Recovered/Resolved]
  - Cytomegalovirus infection [Recovered/Resolved]
